FAERS Safety Report 13574107 (Version 1)
Quarter: 2017Q2

REPORT INFORMATION
  Report Type: Report from Study
  Country: MA (occurrence: MA)
  Receive Date: 20170523
  Receipt Date: 20170523
  Transmission Date: 20170830
  Serious: Yes (Other)
  Sender: FDA-Public Use
  Company Number: MA-AMGEN-MARNI2017077906

PATIENT
  Age: 58 Year
  Sex: Male
  Weight: 72 kg

DRUGS (3)
  1. BISOPROLOL FUMARATE W/HYDROCHLOROTHIAZIDE [Concomitant]
     Active Substance: BISOPROLOL FUMARATE\HYDROCHLOROTHIAZIDE
     Indication: PRODUCT USED FOR UNKNOWN INDICATION
     Dosage: 10 MG, QD
     Route: 048
  2. RAMIPRIL. [Concomitant]
     Active Substance: RAMIPRIL
     Indication: PRODUCT USED FOR UNKNOWN INDICATION
     Dosage: 5 MG, QD
  3. IVABRADINE [Suspect]
     Active Substance: IVABRADINE
     Indication: CARDIAC FAILURE
     Dosage: 7.5 MG, BID
     Route: 048
     Dates: start: 20150817, end: 20151118

REACTIONS (1)
  - Dyspnoea paroxysmal nocturnal [Recovered/Resolved]

NARRATIVE: CASE EVENT DATE: 20151118
